FAERS Safety Report 17069161 (Version 2)
Quarter: 2019Q4

REPORT INFORMATION
  Report Type: Report from Study
  Country: IT (occurrence: IT)
  Receive Date: 20191124
  Receipt Date: 20191203
  Transmission Date: 20200122
  Serious: Yes (Other)
  Sender: FDA-Public Use
  Company Number: IT-BAXTER-2019BAX024002

PATIENT
  Sex: Female

DRUGS (4)
  1. PACLITAXEL. [Suspect]
     Active Substance: PACLITAXEL
     Indication: BREAST NEOPLASM
     Route: 065
     Dates: start: 201502, end: 201508
  2. DOXIL [Suspect]
     Active Substance: DOXORUBICIN HYDROCHLORIDE
     Indication: BREAST NEOPLASM
     Dosage: 4 CYCLES; CYCLICAL
     Route: 065
     Dates: start: 201502, end: 201508
  3. CARBOPLATIN. [Suspect]
     Active Substance: CARBOPLATIN
     Indication: BREAST NEOPLASM
     Dosage: 12 WEEKS
     Route: 065
     Dates: start: 201502, end: 201508
  4. ENDOXAN BAXTER [Suspect]
     Active Substance: CYCLOPHOSPHAMIDE
     Indication: BREAST NEOPLASM
     Dosage: 4 CYCLES; CYCLICAL
     Route: 065
     Dates: start: 201502, end: 201508

REACTIONS (1)
  - Alopecia [Recovered/Resolved]
